FAERS Safety Report 10476835 (Version 2)
Quarter: 2014Q4

REPORT INFORMATION
  Report Type: Spontaneous
  Country: US (occurrence: US)
  Receive Date: 20140926
  Receipt Date: 20141106
  Transmission Date: 20150528
  Serious: Yes (Other)
  Sender: FDA-Public Use
  Company Number: US-NOVOPROD-423480

PATIENT
  Age: 76 Year
  Sex: Female
  Weight: 134.24 kg

DRUGS (8)
  1. VICTOZA [Suspect]
     Active Substance: LIRAGLUTIDE
     Dosage: 1.8 MG, QD
     Route: 058
  2. LEVALBUTEROL                       /01419301/ [Concomitant]
     Indication: WHEEZING
     Dosage: 45 ?G, UNK
     Route: 055
  3. VICTOZA [Suspect]
     Active Substance: LIRAGLUTIDE
     Indication: TYPE 2 DIABETES MELLITUS
     Dosage: UNK
     Route: 058
     Dates: start: 20110705
  4. GLIPIZIDE. [Concomitant]
     Active Substance: GLIPIZIDE
     Indication: PRODUCT USED FOR UNKNOWN INDICATION
     Dosage: 10 MG, BID, BEFORE MEALS
     Route: 048
     Dates: start: 20000101
  5. NOVOLOG [Concomitant]
     Active Substance: INSULIN ASPART
     Indication: PRODUCT USED FOR UNKNOWN INDICATION
     Dosage: 2-8 UNITS INJECTION 4 TIMES DAILY BEFORE MEALS AND NIGHTLY
     Route: 058
  6. SINGULAIR [Concomitant]
     Active Substance: MONTELUKAST SODIUM
     Indication: PRODUCT USED FOR UNKNOWN INDICATION
     Dosage: 10 MG, QD, NIGHTLY
     Route: 048
  7. HUMALOG [Concomitant]
     Active Substance: INSULIN LISPRO
     Indication: PRODUCT USED FOR UNKNOWN INDICATION
     Dosage: 10 U, QID, PRN BLOOD SUGAR OVER 240
     Route: 058
     Dates: start: 20140131
  8. THEOPHYLLINE [Concomitant]
     Active Substance: THEOPHYLLINE ANHYDROUS
     Indication: PRODUCT USED FOR UNKNOWN INDICATION
     Dosage: 450 MG, BID, 1 TABLET EVERY 12 HOURS
     Route: 048
     Dates: start: 20000101

REACTIONS (4)
  - Clear cell renal cell carcinoma [Unknown]
  - Blood cholesterol increased [None]
  - Blood glucose increased [None]
  - Low density lipoprotein increased [None]

NARRATIVE: CASE EVENT DATE: 201408
